FAERS Safety Report 22629210 (Version 1)
Quarter: 2023Q2

REPORT INFORMATION
  Report Type: Report from Study
  Country: CA (occurrence: CA)
  Receive Date: 20230622
  Receipt Date: 20230622
  Transmission Date: 20230722
  Serious: Yes (Hospitalization, Other)
  Sender: FDA-Public Use
  Company Number: CA-OTSUKA-2022_049540

PATIENT
  Sex: Male

DRUGS (1)
  1. CEDAZURIDINE\DECITABINE [Suspect]
     Active Substance: CEDAZURIDINE\DECITABINE
     Indication: Chronic myelomonocytic leukaemia
     Dosage: UNK
     Route: 065
     Dates: start: 20220913

REACTIONS (9)
  - Wound [Unknown]
  - Myelosuppression [Unknown]
  - Infection [Unknown]
  - Anaemia [Unknown]
  - Tooth infection [Unknown]
  - Malaise [Unknown]
  - Bedridden [Unknown]
  - Biopsy bone marrow [Unknown]
  - Decreased appetite [Unknown]
